FAERS Safety Report 20530298 (Version 1)
Quarter: 2022Q1

REPORT INFORMATION
  Report Type: Spontaneous
  Country: JP (occurrence: JP)
  Receive Date: 20220301
  Receipt Date: 20220301
  Transmission Date: 20220423
  Serious: Yes (Hospitalization, Other)
  Sender: FDA-Public Use
  Company Number: JP-AMGEN-JPNSP2022033282

PATIENT
  Age: 66 Year
  Sex: Female

DRUGS (5)
  1. EVENITY [Suspect]
     Active Substance: ROMOSOZUMAB-AQQG
     Indication: Osteoporosis
     Dosage: 210 MILLIGRAM, QMO
     Route: 058
     Dates: start: 20210202
  2. ROXADUSTAT [Suspect]
     Active Substance: ROXADUSTAT
     Indication: Nephrogenic anaemia
     Dosage: 100 MILLIGRAM, QD
     Route: 065
     Dates: end: 20210513
  3. DARBEPOETIN ALFA [Concomitant]
     Active Substance: DARBEPOETIN ALFA
     Dosage: 90  MICROGRAM, 120 MICROGRAM
     Dates: start: 20201219
  4. IRON SUCROSE [Concomitant]
     Active Substance: IRON SUCROSE
     Dosage: 40 MILLIGRAM
     Dates: start: 20210116, end: 20210206
  5. TIAPRIDE [Concomitant]
     Active Substance: TIAPRIDE
     Indication: Product used for unknown indication
     Dosage: 25 MILLIGRAM
     Route: 065
     Dates: start: 20210316

REACTIONS (4)
  - Femoral neck fracture [Unknown]
  - Hepatic encephalopathy [Unknown]
  - High density lipoprotein decreased [Unknown]
  - Hypoalbuminaemia [Unknown]

NARRATIVE: CASE EVENT DATE: 20210401
